FAERS Safety Report 23143407 (Version 1)
Quarter: 2023Q4

REPORT INFORMATION
  Report Type: Report from Study
  Country: US (occurrence: US)
  Receive Date: 20231103
  Receipt Date: 20231103
  Transmission Date: 20240110
  Serious: Yes (Death, Other)
  Sender: FDA-Public Use
  Company Number: US-GILEAD-2023-0649701

PATIENT
  Age: 77 Year
  Sex: Female

DRUGS (23)
  1. AMBRISENTAN [Suspect]
     Active Substance: AMBRISENTAN
     Indication: Pulmonary hypertension
     Dosage: 10 MG, QD
     Route: 065
     Dates: start: 20191107
  2. AMLODIPINE [Concomitant]
     Active Substance: AMLODIPINE BESYLATE
  3. ACETAMINOPHEN\ASCORBIC ACID [Concomitant]
     Active Substance: ACETAMINOPHEN\ASCORBIC ACID
  4. BISACODYL [Concomitant]
     Active Substance: BISACODYL
  5. BUMETANIDE [Concomitant]
     Active Substance: BUMETANIDE
  6. DEXTROSE [Concomitant]
     Active Substance: DEXTROSE\DEXTROSE MONOHYDRATE
  7. DOCUSATE [Concomitant]
     Active Substance: DOCUSATE
  8. ESCITALOPRAM [Concomitant]
     Active Substance: ESCITALOPRAM OXALATE
  9. ISOSORBIDE [Concomitant]
     Active Substance: ISOSORBIDE
  10. LIDOCAINE [Concomitant]
     Active Substance: LIDOCAINE
  11. LOSARTAN [Concomitant]
     Active Substance: LOSARTAN
  12. MELATONIN [Concomitant]
     Active Substance: MELATONIN
  13. MIRTAZAPINE [Concomitant]
     Active Substance: MIRTAZAPINE
  14. MONTELUKAST [Concomitant]
     Active Substance: MONTELUKAST SODIUM
  15. ONDANSETRON [Concomitant]
     Active Substance: ONDANSETRON
  16. PANTOPRAZOLE [Concomitant]
     Active Substance: PANTOPRAZOLE
  17. POTASSIUM [Concomitant]
     Active Substance: POTASSIUM
  18. REMODULIN [Concomitant]
     Active Substance: TREPROSTINIL
  19. SENNA [Concomitant]
     Active Substance: SENNA LEAF\SENNOSIDES\SENNOSIDES A AND B
  20. SILDENAFIL [Concomitant]
     Active Substance: SILDENAFIL
  21. TYLENOL [Concomitant]
     Active Substance: ACETAMINOPHEN
  22. UPTRAVI [Concomitant]
     Active Substance: SELEXIPAG
  23. MAGNESIUM [Concomitant]
     Active Substance: MAGNESIUM

REACTIONS (1)
  - Death [Fatal]
